FAERS Safety Report 8327978-8 (Version None)
Quarter: 2012Q2

REPORT INFORMATION
  Report Type: 
  Country: None (occurrence: None)
  Receive Date: 20120430
  Receipt Date: 20120417
  Transmission Date: 20120825
  Serious: Yes (Hospitalization)
  Sender: FDA-Public Use
  Company Number: GER/UKI/12/0023961

PATIENT
  Sex: Female

DRUGS (4)
  1. OLANZAPINE [Concomitant]
  2. QUETIAPINE FUMARATE [Suspect]
     Indication: PRODUCT USED FOR UNKNOWN INDICATION
     Dosage: ORAL
     Route: 048
     Dates: start: 20111123
  3. QUETIAPINE FUMARATE [Suspect]
     Indication: NASAL DISORDER
     Dosage: ORAL
     Route: 048
     Dates: start: 20111123
  4. CITALOPRAM HYDROBROMIDE [Concomitant]

REACTIONS (6)
  - CONVERSION DISORDER [None]
  - INCORRECT ROUTE OF DRUG ADMINISTRATION [None]
  - INTENTIONAL DRUG MISUSE [None]
  - OVERDOSE [None]
  - SELF-MEDICATION [None]
  - WRONG DRUG ADMINISTERED [None]
